FAERS Safety Report 13832490 (Version 1)
Quarter: 2017Q3

REPORT INFORMATION
  Report Type: Spontaneous
  Country: US (occurrence: US)
  Receive Date: 20170803
  Receipt Date: 20170803
  Transmission Date: 20171127
  Serious: No
  Sender: FDA-Public Use
  Company Number: US-ROCHE-1263584

PATIENT
  Age: 56 Year
  Sex: Female

DRUGS (1)
  1. BONIVA [Suspect]
     Active Substance: IBANDRONATE SODIUM
     Indication: BONE LOSS
     Dosage: TABLET LARGER OF THE TWO
     Route: 065
     Dates: start: 20130809

REACTIONS (2)
  - Musculoskeletal chest pain [Not Recovered/Not Resolved]
  - Dysphagia [Not Recovered/Not Resolved]

NARRATIVE: CASE EVENT DATE: 20130814
